FAERS Safety Report 21937671 (Version 1)
Quarter: 2023Q1

REPORT INFORMATION
  Report Type: Spontaneous
  Country: US (occurrence: US)
  Receive Date: 20230201
  Receipt Date: 20230201
  Transmission Date: 20230417
  Serious: No
  Sender: FDA-Public Use
  Company Number: US-MYLANLABS-2023M1008802

PATIENT
  Sex: Female
  Weight: 50.8 kg

DRUGS (1)
  1. WIXELA INHUB [Suspect]
     Active Substance: FLUTICASONE PROPIONATE\SALMETEROL XINAFOATE
     Indication: Chronic obstructive pulmonary disease
     Dosage: 250/50 MICROGRAM, BID (1 PUFF IN THE MORNING AND 1 PUFF IN THE EVENING)
     Route: 055

REACTIONS (4)
  - Increased viscosity of upper respiratory secretion [Unknown]
  - Cough [Unknown]
  - Oropharyngeal discomfort [Unknown]
  - Dyspnoea [Unknown]
